FAERS Safety Report 9557653 (Version 3)
Quarter: 2013Q4

REPORT INFORMATION
  Report Type: Report from Study
  Country: DE (occurrence: DE)
  Receive Date: 20130926
  Receipt Date: 20131121
  Transmission Date: 20140711
  Serious: Yes (Hospitalization)
  Sender: FDA-Public Use
  Company Number: DE-GLAXOSMITHKLINE-Z0020027B

PATIENT
  Age: 75 Year
  Sex: Male

DRUGS (7)
  1. PLACEBO [Suspect]
     Indication: THROMBOCYTOPENIA
     Route: 048
     Dates: start: 20130507, end: 20130730
  2. ELTROMBOPAG [Suspect]
     Indication: THROMBOCYTOPENIA
     Route: 048
     Dates: start: 20130731
  3. MAGNETRANS FORTE [Concomitant]
     Indication: BLOOD MAGNESIUM DECREASED
     Dosage: 150MG TWICE PER DAY
     Route: 048
     Dates: end: 20130925
  4. COTRIM FORTE [Concomitant]
     Indication: ANTIFUNGAL PROPHYLAXIS
     Dosage: 960MG FOUR TIMES PER WEEK
     Route: 048
     Dates: end: 20131017
  5. ALLOPURINOL [Concomitant]
     Indication: GOUT
     Dosage: 100MG PER DAY
     Route: 048
     Dates: start: 20130925, end: 20131018
  6. NOVAMINSULFON [Concomitant]
     Indication: BACK PAIN
     Dosage: 500MG EVERY 4 DAYS
     Route: 048
     Dates: start: 20130910, end: 20131018
  7. SEVREDOL [Concomitant]
     Indication: BACK PAIN
     Dosage: 10MG AS REQUIRED
     Route: 048
     Dates: start: 20130917, end: 20131019

REACTIONS (2)
  - General physical health deterioration [Not Recovered/Not Resolved]
  - Gastric haemorrhage [Recovered/Resolved with Sequelae]
